FAERS Safety Report 4932201-8 (Version None)
Quarter: 2006Q1

REPORT INFORMATION
  Report Type: 
  Country: None (occurrence: None)
  Receive Date: 20060303
  Receipt Date: 20051205
  Transmission Date: 20060701
  Serious: Yes (Other)
  Sender: FDA-Public Use
  Company Number: PHNU2005DE04039

PATIENT
  Sex: Female

DRUGS (9)
  1. ZOMETA [Suspect]
     Indication: METASTASES TO BONE
     Dosage: 4 MG, QMO
     Dates: start: 20011201, end: 20050501
  2. RADIOTHERAPY [Concomitant]
     Indication: RADIOTHERAPY TO BONE
     Dosage: 45 GY
     Route: 061
     Dates: start: 20011201, end: 20020101
  3. RADIOTHERAPY [Concomitant]
     Dosage: 45 GY
     Route: 061
     Dates: start: 20020201, end: 20020301
  4. RADIOTHERAPY [Concomitant]
     Route: 061
     Dates: start: 20020501, end: 20020601
  5. EXEMESTANE [Concomitant]
     Dates: start: 20011201, end: 20050101
  6. MEGESTAT [Concomitant]
     Dosage: 80 MG/DAY
     Route: 065
     Dates: start: 20031001
  7. TAXOTERE [Concomitant]
     Route: 065
     Dates: start: 20040201, end: 20040801
  8. FASLODEX [Concomitant]
     Route: 065
     Dates: start: 20050201
  9. CAPECITABINE [Concomitant]
     Route: 065
     Dates: start: 20050401

REACTIONS (7)
  - BIOPSY SITE UNSPECIFIED ABNORMAL [None]
  - BONE OPERATION [None]
  - OSTEONECROSIS [None]
  - PAIN IN JAW [None]
  - PLEURAL EFFUSION [None]
  - PRIMARY SEQUESTRUM [None]
  - TUMOUR MARKER INCREASED [None]
